FAERS Safety Report 24553700 (Version 1)
Quarter: 2024Q4

REPORT INFORMATION
  Report Type: Spontaneous
  Country: US (occurrence: US)
  Receive Date: 20241028
  Receipt Date: 20241028
  Transmission Date: 20250115
  Serious: Yes (Other)
  Sender: GLAUKOS
  Company Number: US-GLK-002380

PATIENT

DRUGS (2)
  1. IDOSE TR [Suspect]
     Active Substance: TRAVOPROST
     Indication: Product used for unknown indication
     Dosage: LEFT EYE
     Dates: start: 202408, end: 202408
  2. IDOSE TR [Suspect]
     Active Substance: TRAVOPROST

REACTIONS (3)
  - Iritis [Unknown]
  - Iritis [Unknown]
  - Anterior chamber inflammation [Unknown]

NARRATIVE: CASE EVENT DATE: 20240901
